FAERS Safety Report 25535691 (Version 2)
Quarter: 2025Q3

REPORT INFORMATION
  Report Type: Spontaneous
  Country: BR (occurrence: BR)
  Receive Date: 20250709
  Receipt Date: 20250807
  Transmission Date: 20251021
  Serious: Yes (Death, Hospitalization)
  Sender: INCYTE
  Company Number: BR-002147023-NVSC2025BR107395

PATIENT
  Age: 81 Year

DRUGS (1)
  1. RUXOLITINIB [Suspect]
     Active Substance: RUXOLITINIB
     Indication: Myelofibrosis
     Dosage: 2 DOSAGE FORM, QD (20 MG  WITH 60 TABLETS)
     Route: 065

REACTIONS (4)
  - Multiple organ dysfunction syndrome [Fatal]
  - Myelofibrosis [Fatal]
  - Death [Fatal]
  - Postoperative wound infection [Unknown]
